FAERS Safety Report 7979687-2 (Version None)
Quarter: 2011Q4

REPORT INFORMATION
  Report Type: 
  Country: None (occurrence: None)
  Receive Date: 20111129
  Receipt Date: 20110928
  Transmission Date: 20120403
  Serious: Yes (Other)
  Sender: FDA-Public Use
  Company Number: PHEH2011US05343

PATIENT
  Sex: Female

DRUGS (1)
  1. EXFORGE HCT (VALSARTAN, AMLODIPINE, HYDROCHLOROTHIAZIDE) UNKNOWN [Suspect]

REACTIONS (1)
  - BLOOD PRESSURE FLUCTUATION [None]
